FAERS Safety Report 25578513 (Version 3)
Quarter: 2025Q4

REPORT INFORMATION
  Report Type: Spontaneous
  Country: JP (occurrence: JP)
  Receive Date: 20250718
  Receipt Date: 20251013
  Transmission Date: 20260117
  Serious: Yes (Death, Other)
  Sender: PFIZER
  Company Number: JP-PFIZER INC-PV202500086051

PATIENT
  Sex: Female

DRUGS (3)
  1. SIROLIMUS [Suspect]
     Active Substance: SIROLIMUS
     Indication: Lymphangioma
     Dosage: 1 MG
     Route: 065
  2. HERBALS [Concomitant]
     Active Substance: HERBALS
     Indication: Lymphangioma
  3. OGIKENCHUTO [ASTRAGALUS SPP. ROOT;CINNAMOMUM CASSIA BARK;GLYCYRRHIZA S [Concomitant]
     Indication: Lymphangioma

REACTIONS (5)
  - Lung abscess [Fatal]
  - Neonatal pneumonia [Fatal]
  - Pneumonia aspiration [Fatal]
  - Neonatal infection [Unknown]
  - Neonatal respiratory failure [Unknown]
